FAERS Safety Report 6301172-4 (Version None)
Quarter: 2009Q3

REPORT INFORMATION
  Report Type: 
  Country: None (occurrence: None)
  Receive Date: 20090807
  Receipt Date: 20090729
  Transmission Date: 20100115
  Serious: Yes (Other)
  Sender: FDA-Public Use
  Company Number: FR-ASTRAZENECA-2009SE06230

PATIENT
  Age: 380 Month
  Sex: Female

DRUGS (2)
  1. ZOMIG [Suspect]
     Dosage: 150-200 TABLETS/MONTHLY
     Route: 048
  2. LAMALINE [Concomitant]

REACTIONS (1)
  - INTENTIONAL DRUG MISUSE [None]
